FAERS Safety Report 17511254 (Version 3)
Quarter: 2020Q1

REPORT INFORMATION
  Report Type: Spontaneous
  Country: IT (occurrence: IT)
  Receive Date: 20200306
  Receipt Date: 20200320
  Transmission Date: 20200409
  Serious: Yes (Hospitalization, Other)
  Sender: FDA-Public Use
  Company Number: IT-MYLANLABS-2020M1023422

PATIENT
  Age: 5 Year
  Sex: Male

DRUGS (2)
  1. OMEPRAZOLE. [Suspect]
     Active Substance: OMEPRAZOLE
     Indication: PRODUCT USED FOR UNKNOWN INDICATION
     Dosage: 1 MILLIGRAM/KILOGRAM, QD
     Route: 042
  2. PHENYTOIN. [Interacting]
     Active Substance: PHENYTOIN
     Indication: NERVOUS SYSTEM DISORDER PROPHYLAXIS
     Dosage: 10 MILLIGRAM/KILOGRAM, QD(5 MG/KG, Q12 H)
     Route: 042

REACTIONS (10)
  - Nystagmus [Recovering/Resolving]
  - Mydriasis [Recovering/Resolving]
  - Hyperventilation [Recovering/Resolving]
  - Off label use [Unknown]
  - Toxicity to various agents [Recovering/Resolving]
  - Drug interaction [Recovering/Resolving]
  - Drug level above therapeutic [Recovering/Resolving]
  - Loss of consciousness [Recovering/Resolving]
  - Altered state of consciousness [Recovering/Resolving]
  - Extensor plantar response [Recovering/Resolving]
